FAERS Safety Report 20505219 (Version 1)
Quarter: 2022Q1

REPORT INFORMATION
  Report Type: Report from Study
  Country: IT (occurrence: IT)
  Receive Date: 20220223
  Receipt Date: 20220223
  Transmission Date: 20220423
  Serious: Yes (Hospitalization)
  Sender: FDA-Public Use
  Company Number: IT-ABBVIE-22K-083-4288767-00

PATIENT
  Age: 60 Year
  Sex: Female

DRUGS (2)
  1. CARBIDOPA\LEVODOPA [Suspect]
     Active Substance: CARBIDOPA\LEVODOPA
     Indication: Parkinson^s disease
     Dosage: TOTAL DAILY DOSE (MG) 770 PUMP SETTING MD: 6 3 CR: 1,9 (15H), ED: 2
     Route: 050
     Dates: start: 20210921
  2. CARBIDOPA\LEVODOPA [Suspect]
     Active Substance: CARBIDOPA\LEVODOPA

REACTIONS (1)
  - Shoulder arthroplasty [Recovered/Resolved]

NARRATIVE: CASE EVENT DATE: 20220201
